FAERS Safety Report 5155137-9 (Version None)
Quarter: 2006Q4

REPORT INFORMATION
  Report Type: 
  Country: None (occurrence: None)
  Receive Date: 20061121
  Receipt Date: 20061107
  Transmission Date: 20070319
  Serious: Yes (Hospitalization)
  Sender: FDA-Public Use
  Company Number: CA-ELI_LILLY_AND_COMPANY-CA200611001826

PATIENT
  Age: 60 Year
  Sex: Female

DRUGS (12)
  1. FORTEO [Suspect]
     Indication: OSTEOPOROSIS
     Dosage: 20 UG, DAILY (1/D)
     Dates: start: 20061005
  2. SOLUTIONS FOR PARENTERAL NUTRITION [Concomitant]
     Indication: NUTRITIONAL SUPPORT
     Dosage: UNK, 4/W
  3. APO-SULFATRIM [Concomitant]
  4. WARFARIN SODIUM [Concomitant]
  5. FLUVOXAMINE MALEATE [Concomitant]
  6. NOVO-METOPROL [Concomitant]
  7. OXYCODONE HYDROCHLORIDE AND ACETAMINOPHEN [Concomitant]
  8. MELOXICAM [Concomitant]
  9. PMS-HYDROMORPHONE [Concomitant]
  10. SYNTHROID [Concomitant]
  11. DURAGESIC-100 [Concomitant]
  12. GRAVOL TAB [Concomitant]
     Dosage: UNK, AS NEEDED

REACTIONS (1)
  - CENTRAL LINE INFECTION [None]
